FAERS Safety Report 9406031 (Version 1)
Quarter: 2013Q3

REPORT INFORMATION
  Report Type: Spontaneous
  Country: US (occurrence: US)
  Receive Date: 20130717
  Receipt Date: 20130717
  Transmission Date: 20140515
  Serious: Yes (Hospitalization, Disabling, Other)
  Sender: FDA-Public Use
  Company Number: US-009507513-1203USA03305

PATIENT
  Sex: Female

DRUGS (7)
  1. FOSAMAX [Suspect]
     Indication: OSTEOPENIA
     Dosage: UNK UNK, QM
     Route: 048
     Dates: start: 19990913, end: 200806
  2. FOSAMAX [Suspect]
     Indication: OSTEOPOROSIS
     Dosage: 70 MG, UNK
     Route: 048
     Dates: start: 20040220, end: 201007
  3. FOSAMAX [Suspect]
     Indication: OSTEOPENIA
     Dosage: UNK UNK, QM
     Route: 048
     Dates: start: 200806
  4. FOSAMAX [Suspect]
     Dosage: UNK UNK, QM
     Route: 048
     Dates: start: 200806
  5. OMEGA-3 MARINE TRIGLYCERIDES [Concomitant]
  6. MK-9278 [Concomitant]
  7. ALENDRONATE SODIUM [Suspect]
     Dosage: 70 MG, UNK

REACTIONS (14)
  - Femur fracture [Recovered/Resolved with Sequelae]
  - Low turnover osteopathy [Not Recovered/Not Resolved]
  - Hypertension [Unknown]
  - Blood cholesterol increased [Unknown]
  - Arthritis [Unknown]
  - Osteopenia [Unknown]
  - Cataract [Unknown]
  - Foot deformity [Unknown]
  - Lipoma [Unknown]
  - Eye disorder [Unknown]
  - Cystitis [Unknown]
  - Spinal column stenosis [Unknown]
  - Sacroiliitis [Unknown]
  - Back pain [Unknown]
